FAERS Safety Report 6362085-5 (Version None)
Quarter: 2009Q3

REPORT INFORMATION
  Report Type: 
  Country: None (occurrence: None)
  Receive Date: 20090918
  Receipt Date: 20090916
  Transmission Date: 20100115
  Serious: Yes (Death, Hospitalization, Other)
  Sender: FDA-Public Use
  Company Number: PHHY2009BR39864

PATIENT
  Sex: Female
  Weight: 60 kg

DRUGS (9)
  1. EXELON [Suspect]
     Indication: DEMENTIA ALZHEIMER'S TYPE
     Dosage: 1.5 MG PER DAY
     Dates: start: 20070101
  2. EXELON [Suspect]
     Dosage: 1.5 MG, BID
     Route: 048
  3. EXELON [Suspect]
     Dosage: 9MG/5CM2, 1 PATCH/DAY
     Route: 062
  4. EXELON [Suspect]
     Dosage: 18MG/10CM2
     Route: 062
  5. EXELON [Suspect]
     Dosage: 1 PATCH A DAY
     Route: 062
  6. DAONIL [Concomitant]
  7. ATENOLOL [Concomitant]
  8. METFORMIN HCL [Concomitant]
  9. PROLOPA [Concomitant]

REACTIONS (7)
  - ABASIA [None]
  - CEREBRAL ISCHAEMIA [None]
  - FALL [None]
  - FEMORAL NECK FRACTURE [None]
  - GAIT DISTURBANCE [None]
  - RESPIRATORY FAILURE [None]
  - URINARY TRACT INFECTION [None]
